FAERS Safety Report 8017353-8 (Version None)
Quarter: 2012Q1

REPORT INFORMATION
  Report Type: 
  Country: None (occurrence: None)
  Receive Date: 20120102
  Receipt Date: 20111228
  Transmission Date: 20120608
  Serious: Yes (Death, Life-Threatening, Hospitalization, Other)
  Sender: FDA-Public Use
  Company Number: JP-ROCHE-715637

PATIENT
  Sex: Female
  Weight: 39 kg

DRUGS (41)
  1. AVASTIN [Suspect]
     Indication: LUNG ADENOCARCINOMA
     Route: 041
     Dates: start: 20100625, end: 20100721
  2. ACTEMRA [Suspect]
     Route: 041
     Dates: start: 20090415, end: 20090415
  3. ACTEMRA [Suspect]
     Route: 041
     Dates: start: 20090513, end: 20090513
  4. RIFADIN [Concomitant]
     Indication: ANTIBIOTIC PROPHYLAXIS
     Route: 048
  5. LANSOPRAZOLE [Concomitant]
     Indication: GASTRITIS
     Dosage: FORM: PERORAL AGENT.
     Route: 048
  6. EVISTA [Concomitant]
     Indication: OSTEOPOROSIS
     Route: 048
  7. CYTOTEC [Concomitant]
     Indication: GASTRITIS
     Route: 048
  8. FERROUS CITRATE [Concomitant]
     Indication: PROPHYLAXIS
     Route: 048
  9. CLARITHROMYCIN [Concomitant]
     Route: 048
  10. LEVOFLOXACIN [Concomitant]
     Route: 048
  11. ACTEMRA [Suspect]
     Route: 041
     Dates: start: 20090708, end: 20090708
  12. PURSENNID [Concomitant]
     Route: 048
  13. HALCION [Concomitant]
     Route: 048
  14. ACTEMRA [Suspect]
     Route: 041
     Dates: start: 20081029, end: 20081029
  15. ACTEMRA [Suspect]
     Route: 041
     Dates: start: 20090610, end: 20090610
  16. LORNOXICAM [Suspect]
     Indication: RHEUMATOID ARTHRITIS
     Route: 048
  17. PROGRAF [Concomitant]
     Indication: RHEUMATOID ARTHRITIS
     Route: 048
  18. ACTEMRA [Suspect]
     Route: 041
     Dates: start: 20081224, end: 20081224
  19. ALENDRONATE SODIUM [Concomitant]
     Indication: OSTEOPOROSIS
     Route: 048
  20. CARBOPLATIN [Concomitant]
     Route: 041
     Dates: start: 20100625, end: 20100721
  21. ACTEMRA [Suspect]
     Route: 041
     Dates: start: 20080904, end: 20080904
  22. ACTEMRA [Suspect]
     Route: 041
     Dates: start: 20081001, end: 20081001
  23. ACTEMRA [Suspect]
     Route: 041
     Dates: start: 20090121, end: 20090121
  24. CARBOPLATIN [Suspect]
     Indication: LUNG ADENOCARCINOMA
     Route: 041
     Dates: start: 20100625, end: 20100721
  25. PEMETREXED DISODIUM [Suspect]
     Indication: LUNG ADENOCARCINOMA
     Route: 041
     Dates: start: 20100625, end: 20100721
  26. METALCAPTASE [Concomitant]
     Indication: RHEUMATOID ARTHRITIS
     Route: 048
  27. PLETAL [Concomitant]
     Indication: ARTERIAL OCCLUSIVE DISEASE
     Route: 048
  28. ACTEMRA [Suspect]
     Route: 041
     Dates: start: 20081126, end: 20081126
  29. PREDNISOLONE AND PREDNISOLONE ACETATE AND PREDNISOLONE SODIUM SUCCINAT [Suspect]
     Indication: RHEUMATOID ARTHRITIS
     Route: 048
  30. PREDNISOLONE AND PREDNISOLONE ACETATE AND PREDNISOLONE SODIUM SUCCINAT [Suspect]
     Route: 048
     Dates: start: 20100625, end: 20100806
  31. PREDNISOLONE [Suspect]
     Indication: RHEUMATOID ARTHRITIS
     Dosage: PREDOHAN
     Route: 048
  32. PYDOXAL [Concomitant]
     Indication: PROPHYLAXIS
     Route: 048
  33. CLARITHROMYCIN [Concomitant]
     Indication: PROPHYLAXIS
     Route: 048
  34. FLURBIPROFEN [Concomitant]
     Dosage: FORM: TAPE, NOTE: DOSAGE IS UNCERTAIN.
     Route: 062
  35. ACTEMRA [Suspect]
     Indication: RHEUMATOID ARTHRITIS
     Route: 041
     Dates: start: 20080807, end: 20080807
  36. ACTEMRA [Suspect]
     Route: 041
     Dates: start: 20090218, end: 20090218
  37. ACTEMRA [Suspect]
     Route: 041
     Dates: start: 20090319, end: 20090319
  38. ACTEMRA [Suspect]
     Route: 041
     Dates: start: 20090805, end: 20100510
  39. DICLOFENAC SODIUM [Suspect]
     Indication: RHEUMATOID ARTHRITIS
     Dosage: FORM:SUPPOSITORY RECTALE
     Route: 054
  40. ISONIAZID [Concomitant]
     Indication: ANTIBIOTIC PROPHYLAXIS
     Route: 048
  41. FLURBIPROFEN [Concomitant]
     Indication: RHEUMATOID ARTHRITIS
     Dosage: FORM: TAPE, DOSAGE UNCERTAIN, DRUG:ADOFEED
     Route: 062

REACTIONS (17)
  - JOINT SURGERY [None]
  - SMALL INTESTINAL PERFORATION [None]
  - TACHYCARDIA [None]
  - STAPHYLOCOCCAL INFECTION [None]
  - GASTRITIS [None]
  - INFECTIOUS PERITONITIS [None]
  - GASTROINTESTINAL AMYLOIDOSIS [None]
  - CARDIAC FAILURE [None]
  - ATRIAL FIBRILLATION [None]
  - PYREXIA [None]
  - LUNG ADENOCARCINOMA [None]
  - C-REACTIVE PROTEIN INCREASED [None]
  - BLOOD UREA INCREASED [None]
  - LUMBAR SPINAL STENOSIS [None]
  - DIARRHOEA [None]
  - SMALL INTESTINE ULCER [None]
  - PLEURAL EFFUSION [None]
